FAERS Safety Report 14066989 (Version 1)
Quarter: 2017Q4

REPORT INFORMATION
  Report Type: Spontaneous
  Country: US (occurrence: US)
  Receive Date: 20171006
  Receipt Date: 20171006
  Transmission Date: 20180321
  Serious: Yes (Life-Threatening)
  Sender: FDA-Public Use
  Company Number: None

PATIENT
  Age: 81 Year
  Sex: Male
  Weight: 101.25 kg

DRUGS (8)
  1. LISINOPRIL. [Suspect]
     Active Substance: LISINOPRIL
     Indication: AORTIC VALVE REPLACEMENT
     Dosage: ?          QUANTITY:1 TABLET(S);?
     Route: 048
     Dates: start: 19980101, end: 20170920
  2. BABY ASPIRIN [Concomitant]
     Active Substance: ASPIRIN
  3. PLAVIX [Concomitant]
     Active Substance: CLOPIDOGREL BISULFATE
  4. LISINOPRIL. [Suspect]
     Active Substance: LISINOPRIL
     Indication: CORONARY ARTERY BYPASS
     Dosage: ?          QUANTITY:1 TABLET(S);?
     Route: 048
     Dates: start: 19980101, end: 20170920
  5. LIPITOR [Concomitant]
     Active Substance: ATORVASTATIN CALCIUM
  6. VITAMIN D3 [Concomitant]
     Active Substance: CHOLECALCIFEROL
  7. LISINOPRIL. [Suspect]
     Active Substance: LISINOPRIL
     Indication: POSTOPERATIVE CARE
     Dosage: ?          QUANTITY:1 TABLET(S);?
     Route: 048
     Dates: start: 19980101, end: 20170920
  8. PRILOSEC [Concomitant]
     Active Substance: OMEPRAZOLE MAGNESIUM

REACTIONS (2)
  - Dysstasia [None]
  - Blood pressure orthostatic abnormal [None]

NARRATIVE: CASE EVENT DATE: 20170720
